FAERS Safety Report 8153197-4 (Version None)
Quarter: 2012Q1

REPORT INFORMATION
  Report Type: 
  Country: None (occurrence: None)
  Receive Date: 20120215
  Receipt Date: 20120206
  Transmission Date: 20120608
  Serious: Yes (Other)
  Sender: FDA-Public Use
  Company Number: 1000028095

PATIENT
  Age: 62 Year
  Sex: Female

DRUGS (5)
  1. COPD MEDICATIONS (NOS) (COPD MEDICATIONS (NOS)) (COPD MEDICATIONS (NOS [Concomitant]
  2. PREDNISONE TAB [Suspect]
     Indication: CHRONIC OBSTRUCTIVE PULMONARY DISEASE
  3. XANAX [Concomitant]
  4. PRILOSEC (OMEPRAZLE) (OMEPRAZLE) [Concomitant]
  5. CELEXA [Suspect]
     Dosage: 20 MG (20 MG, 1 IN 1 D) 40 MG (20 MG, 2 IN 1 D)
     Dates: start: 20110701

REACTIONS (4)
  - HAEMORRHAGE SUBCUTANEOUS [None]
  - NERVOUSNESS [None]
  - RESPIRATORY DISORDER [None]
  - CONDITION AGGRAVATED [None]
